FAERS Safety Report 16081022 (Version 1)
Quarter: 2019Q1

REPORT INFORMATION
  Report Type: Spontaneous
  Country: US (occurrence: US)
  Receive Date: 20190316
  Receipt Date: 20190316
  Transmission Date: 20190418
  Serious: No
  Sender: FDA-Public Use
  Company Number: US-DRREDDYS-USA/USA/19/0108498

PATIENT
  Age: 57 Year
  Sex: Female
  Weight: 113.63 kg

DRUGS (1)
  1. SUMATRIPTAN INJECTION USP, 6 MG/0.5 ML [Suspect]
     Active Substance: SUMATRIPTAN
     Indication: MIGRAINE
     Dosage: SUMATRIPTAN SUCCINATE INJECTION, USP AUTO INJECTION SYSTEM 6MG/0.5ML
     Route: 058

REACTIONS (3)
  - Product quality issue [Unknown]
  - Injection site haemorrhage [Unknown]
  - Underdose [Unknown]
